FAERS Safety Report 8485913 (Version 4)
Quarter: 2012Q4

REPORT INFORMATION
  Report Type: Report from Study
  Country: AU (occurrence: AU)
  Receive Date: 20120330
  Receipt Date: 20121016
  Transmission Date: 20130627
  Serious: Yes (Hospitalization)
  Sender: FDA-Public Use
  Company Number: AU-TEVA-330077USA

PATIENT
  Age: 84 Year
  Sex: Female
  Weight: 95.7 kg

DRUGS (12)
  1. TREANDA [Suspect]
     Indication: B-CELL LYMPHOMA
     Dosage: UID/QD
     Route: 042
     Dates: start: 20120109, end: 20120110
  2. TREANDA [Suspect]
     Dosage: UID/QD
     Route: 042
     Dates: start: 20120130, end: 20120221
  3. TREANDA [Suspect]
     Dosage: UID/QD
     Route: 042
     Dates: start: 20120220
  4. KARVEA HCT [Concomitant]
     Dates: start: 199809
  5. ACETYLSALICYLIC ACID [Concomitant]
  6. PARACETAMOL [Concomitant]
     Dates: start: 200609
  7. PANTOPRAZOLE SODIUM [Concomitant]
     Dates: start: 200901
  8. BETAMETHASONE DIPROPIONATE [Concomitant]
     Dates: start: 20120207
  9. BUDESONIDE W/FORMOTEROL FUMARATE [Concomitant]
     Dates: start: 20111212
  10. OXYCODONE HYDROCHLORIDE [Concomitant]
  11. PIP/TAZO [Concomitant]
  12. NORMACOL [Concomitant]

REACTIONS (1)
  - Limb injury [Recovered/Resolved with Sequelae]
